FAERS Safety Report 9154071 (Version 1)
Quarter: 2013Q1

REPORT INFORMATION
  Report Type: Spontaneous
  Country: US (occurrence: None)
  Receive Date: 20130308
  Receipt Date: 20130308
  Transmission Date: 20140127
  Serious: Yes (Life-Threatening)
  Sender: FDA-Public Use
  Company Number: None

PATIENT
  Age: 19 Year
  Sex: Female
  Weight: 56.7 kg

DRUGS (2)
  1. TRISPRINTEC [Suspect]
     Indication: CONTRACEPTION
     Dosage: 1 TABLET
     Route: 048
     Dates: start: 20120101, end: 20121219
  2. FEOSOL TABLETS [Concomitant]

REACTIONS (13)
  - Loss of consciousness [None]
  - Anaemia [None]
  - Muscular weakness [None]
  - Dizziness [None]
  - Balance disorder [None]
  - Headache [None]
  - Vision blurred [None]
  - Blindness unilateral [None]
  - Blood disorder [None]
  - Lipids increased [None]
  - Protein S increased [None]
  - Visual impairment [None]
  - Eye disorder [None]
